FAERS Safety Report 21763503 (Version 2)
Quarter: 2022Q4

REPORT INFORMATION
  Report Type: Spontaneous
  Country: CR (occurrence: CR)
  Receive Date: 20221221
  Receipt Date: 20221230
  Transmission Date: 20230112
  Serious: Yes (Disabling, Other)
  Sender: FDA-Public Use
  Company Number: CR-SA-SAC20221220000708

PATIENT
  Age: 88 Year
  Sex: Female

DRUGS (2)
  1. IRBESARTAN [Suspect]
     Active Substance: IRBESARTAN
     Indication: Hypertension
     Dosage: 1 DF, QD
     Route: 048
     Dates: end: 2020
  2. AMLODIPINE BESYLATE\IRBESARTAN [Concomitant]
     Active Substance: AMLODIPINE BESYLATE\IRBESARTAN
     Indication: Hypertension
     Dosage: 1 DF, QD
     Route: 058

REACTIONS (8)
  - Cerebrovascular accident [Not Recovered/Not Resolved]
  - Bedridden [Not Recovered/Not Resolved]
  - Gait inability [Not Recovered/Not Resolved]
  - Walking disability [Not Recovered/Not Resolved]
  - Dysarthria [Not Recovered/Not Resolved]
  - Memory impairment [Not Recovered/Not Resolved]
  - Peripheral swelling [Unknown]
  - Product dose omission in error [Unknown]

NARRATIVE: CASE EVENT DATE: 20160101
